FAERS Safety Report 4552637-7 (Version None)
Quarter: 2005Q1

REPORT INFORMATION
  Report Type: 
  Country: None (occurrence: None)
  Receive Date: 20050114
  Receipt Date: 20050104
  Transmission Date: 20050727
  Serious: Yes (Hospitalization, Other)
  Sender: FDA-Public Use
  Company Number: CH-JNJFOC-20041207583

PATIENT
  Sex: Female

DRUGS (4)
  1. REMICADE [Suspect]
     Indication: PSORIATIC ARTHROPATHY
     Route: 042
  2. TENORMIN [Concomitant]
     Indication: HYPERTENSION
     Route: 049
  3. ARAVA [Concomitant]
     Indication: PSORIATIC ARTHROPATHY
     Route: 049
  4. ZURCAL [Concomitant]
     Indication: GASTROINTESTINAL DISORDER THERAPY
     Route: 049

REACTIONS (2)
  - CRANIAL NERVE DISORDER [None]
  - DEAFNESS [None]
